FAERS Safety Report 4333933-5 (Version None)
Quarter: 2004Q2

REPORT INFORMATION
  Report Type: 
  Country: None (occurrence: None)
  Receive Date: 20040402
  Receipt Date: 20040323
  Transmission Date: 20050107
  Serious: Yes (Other)
  Sender: FDA-Public Use
  Company Number: 0400018EN0020P

PATIENT
  Age: 17 Year
  Sex: Male

DRUGS (2)
  1. ONCASPAR [Suspect]
     Indication: ACUTE LYMPHOCYTIC LEUKAEMIA
  2. METHOTREXATE [Concomitant]

REACTIONS (7)
  - ANGIONEUROTIC OEDEMA [None]
  - ERYTHEMA [None]
  - EYELID OEDEMA [None]
  - NAUSEA [None]
  - SWELLING FACE [None]
  - THROAT IRRITATION [None]
  - VOMITING [None]
